FAERS Safety Report 13334349 (Version 1)
Quarter: 2017Q1

REPORT INFORMATION
  Report Type: Spontaneous
  Country: SG (occurrence: SG)
  Receive Date: 20170314
  Receipt Date: 20170314
  Transmission Date: 20170428
  Serious: Yes (Hospitalization)
  Sender: FDA-Public Use
  Company Number: SG-INGENUS PHARMACEUTICALS NJ, LLC-ING201703-000112

PATIENT
  Age: 60 Year
  Sex: Male

DRUGS (2)
  1. CARISOPRODOL AND ASPIRIN [Suspect]
     Active Substance: ASPIRIN\CARISOPRODOL
     Indication: ATRIAL FIBRILLATION
  2. CLOPIDOGREL [Suspect]
     Active Substance: CLOPIDOGREL BISULFATE
     Indication: ATRIAL FIBRILLATION

REACTIONS (2)
  - Spinal cord compression [Recovered/Resolved]
  - Spinal epidural haematoma [Recovered/Resolved]

NARRATIVE: CASE EVENT DATE: 201004
